FAERS Safety Report 10383695 (Version 1)
Quarter: 2014Q1

REPORT INFORMATION
  Report Type: Spontaneous
  Country: US (occurrence: None)
  Receive Date: 20140306
  Receipt Date: 20140306
  Transmission Date: 20141002
  Serious: No
  Sender: FDA-Public Use
  Company Number: 163-21880-13050823

PATIENT
  Age: 86 Year
  Sex: Male

DRUGS (10)
  1. REVLIMID (LENALIDOMIDE) (5 MILLIGRAM, CAPSULES) [Suspect]
     Indication: PLASMA CELL MYELOMA
     Route: 048
     Dates: start: 20120731
  2. CARAFATE (SUCRALAFATE) [Concomitant]
  3. COUMADIN (WARFARIN SODIUM) [Concomitant]
  4. HYDRALAZINE (HYDRALAZINE) [Concomitant]
  5. PROTONIX (UNKNOWN) [Concomitant]
  6. SIMVASTATIN (SIMVASTATIN) [Concomitant]
  7. VITAMIN B-12 (CYANOCOBALMIN) [Concomitant]
  8. VITAMIN B-6 (PYRIDOXINE HYDROCHLORIDE) [Concomitant]
  9. HEPARIN (HEPARIN) [Concomitant]
  10. ARANSEP (INJECTION) [Concomitant]

REACTIONS (3)
  - Haemoglobin decreased [None]
  - Platelet count decreased [None]
  - White blood cell count decreased [None]
